FAERS Safety Report 7360354-3 (Version None)
Quarter: 2011Q1

REPORT INFORMATION
  Report Type: 
  Country: None (occurrence: None)
  Receive Date: 20110318
  Receipt Date: 20110309
  Transmission Date: 20110831
  Serious: Yes (Hospitalization)
  Sender: FDA-Public Use
  Company Number: US-JNJFOC-20110304925

PATIENT
  Sex: Female
  Weight: 108.86 kg

DRUGS (6)
  1. FENTANYL-100 [Suspect]
     Indication: PAIN
     Route: 062
  2. DURAGESIC-50 [Suspect]
     Route: 062
  3. IMMUNE GLOBULIN NOS [Concomitant]
     Route: 065
  4. IMMUNE GLOBULIN NOS [Suspect]
     Indication: IMMUNODEFICIENCY
     Route: 065
  5. DURAGESIC-50 [Suspect]
     Indication: PAIN
     Route: 062
  6. DURAGESIC-50 [Suspect]
     Route: 062

REACTIONS (5)
  - PNEUMONIA [None]
  - CYST [None]
  - OEDEMA [None]
  - DRUG INEFFECTIVE [None]
  - PELVIC PAIN [None]
